FAERS Safety Report 11130721 (Version 1)
Quarter: 2015Q2

REPORT INFORMATION
  Report Type: Report from Study
  Country: US (occurrence: None)
  Receive Date: 20150520
  Receipt Date: 20150520
  Transmission Date: 20150821
  Serious: Yes (Hospitalization)
  Sender: FDA-Public Use
  Company Number: DEP_02818_2015

PATIENT
  Age: 67 Year
  Sex: Female

DRUGS (2)
  1. NUCYNTA [Suspect]
     Active Substance: TAPENTADOL HYDROCHLORIDE
     Route: 048
     Dates: start: 20141210, end: 20141210
  2. LORTAB [Suspect]
     Active Substance: ACETAMINOPHEN\HYDROCODONE BITARTRATE
     Route: 048
     Dates: end: 20141210

REACTIONS (8)
  - Depressed level of consciousness [None]
  - Somnolence [None]
  - Drug screen positive [None]
  - Exposure via ingestion [None]
  - Abdominal distension [None]
  - Oxygen saturation decreased [None]
  - Suicide attempt [None]
  - Memory impairment [None]

NARRATIVE: CASE EVENT DATE: 20141210
